FAERS Safety Report 11279946 (Version 3)
Quarter: 2015Q4

REPORT INFORMATION
  Report Type: Spontaneous
  Country: US (occurrence: US)
  Receive Date: 20150717
  Receipt Date: 20151113
  Transmission Date: 20160304
  Serious: Yes (Hospitalization, Other)
  Sender: FDA-Public Use
  Company Number: US-ELI_LILLY_AND_COMPANY-US201507002648

PATIENT
  Age: 70 Year
  Sex: Male

DRUGS (4)
  1. ASPIRIN                            /00002701/ [Concomitant]
     Active Substance: ASPIRIN
     Indication: PRODUCT USED FOR UNKNOWN INDICATION
     Dosage: 81 MG, UNKNOWN
     Route: 048
  2. AXIRON [Suspect]
     Active Substance: TESTOSTERONE
     Indication: ANDROGEN REPLACEMENT THERAPY
     Dosage: 60 MG, QD
     Route: 062
     Dates: start: 201205, end: 201309
  3. ATENOLOL. [Concomitant]
     Active Substance: ATENOLOL
     Indication: PRODUCT USED FOR UNKNOWN INDICATION
     Dosage: 25 MG, QD
     Route: 048
  4. INDAPAMIDE. [Concomitant]
     Active Substance: INDAPAMIDE
     Indication: PRODUCT USED FOR UNKNOWN INDICATION
     Dosage: 1.25 MG, QD
     Route: 048

REACTIONS (14)
  - Coronary artery disease [Unknown]
  - Acute myocardial infarction [Not Recovered/Not Resolved]
  - Presyncope [Unknown]
  - Interstitial lung disease [Unknown]
  - Hyperglycaemia [Unknown]
  - Angina pectoris [Unknown]
  - Pulmonary congestion [Unknown]
  - Anxiety [Unknown]
  - Pulmonary hypertension [Unknown]
  - Aortic arteriosclerosis [Unknown]
  - Bradycardia [Recovered/Resolved]
  - Vomiting [Unknown]
  - Cardiac failure congestive [Unknown]
  - Nausea [Unknown]

NARRATIVE: CASE EVENT DATE: 20130926
